FAERS Safety Report 12485533 (Version 1)
Quarter: 2016Q2

REPORT INFORMATION
  Report Type: Report from Study
  Country: BR (occurrence: BR)
  Receive Date: 20160621
  Receipt Date: 20160621
  Transmission Date: 20160815
  Serious: Yes (Other)
  Sender: FDA-Public Use
  Company Number: BR-JNJFOC-20160613427

PATIENT
  Age: 76 Year
  Sex: Female

DRUGS (2)
  1. SIMPONI [Suspect]
     Active Substance: GOLIMUMAB
     Indication: RHEUMATOID ARTHRITIS
     Route: 058
     Dates: start: 20150715
  2. TECNOMET [Concomitant]
     Active Substance: METHOTREXATE
     Route: 065

REACTIONS (3)
  - Pneumonia [Unknown]
  - Memory impairment [Unknown]
  - Head injury [Unknown]

NARRATIVE: CASE EVENT DATE: 201605
